FAERS Safety Report 10625423 (Version 1)
Quarter: 2014Q4

REPORT INFORMATION
  Report Type: Spontaneous
  Country: PT (occurrence: None)
  Receive Date: 20141202
  Receipt Date: 20141202
  Transmission Date: 20150529
  Serious: Yes (Life-Threatening, Other)
  Sender: FDA-Public Use
  Company Number: 2014AMD00126

PATIENT
  Age: 44 Year
  Sex: Female

DRUGS (1)
  1. EPINEPHRINE (EPINEPHRINE) INTRAVENOUS [Suspect]
     Active Substance: EPINEPHRINE HYDROCHLORIDE
     Indication: UTERINE LEIOMYOMA
     Dosage: 1 MG, INFILTRATION

REACTIONS (8)
  - Ventricular tachycardia [None]
  - Electrocardiogram ST segment elevation [None]
  - Ventricular hypokinesia [None]
  - Systolic dysfunction [None]
  - Troponin increased [None]
  - Cardiogenic shock [None]
  - Stress cardiomyopathy [None]
  - Brain natriuretic peptide increased [None]
